FAERS Safety Report 14146138 (Version 4)
Quarter: 2018Q1

REPORT INFORMATION
  Report Type: Report from Study
  Country: CO (occurrence: CO)
  Receive Date: 20171031
  Receipt Date: 20180131
  Transmission Date: 20180508
  Serious: Yes (Hospitalization, Other)
  Sender: FDA-Public Use
  Company Number: CO-JNJFOC-20171033121

PATIENT
  Age: 83 Year
  Sex: Female

DRUGS (3)
  1. DIOSMIN [Concomitant]
     Active Substance: DIOSMIN
     Route: 065
  2. XARELTO [Suspect]
     Active Substance: RIVAROXABAN
     Indication: ATRIAL FIBRILLATION
     Route: 048
     Dates: start: 20120402
  3. IRON [Concomitant]
     Active Substance: IRON
     Route: 042

REACTIONS (9)
  - Haemoglobin decreased [Not Recovered/Not Resolved]
  - Bone marrow failure [Recovering/Resolving]
  - Platelet count decreased [Not Recovered/Not Resolved]
  - Haemoglobin decreased [Not Recovered/Not Resolved]
  - Haemoglobin decreased [Recovering/Resolving]
  - Platelet count decreased [Not Recovered/Not Resolved]
  - Contusion [Recovering/Resolving]
  - Anaemia [Recovering/Resolving]
  - Platelet production decreased [Recovering/Resolving]

NARRATIVE: CASE EVENT DATE: 2015
